FAERS Safety Report 23566620 (Version 1)
Quarter: 2024Q1

REPORT INFORMATION
  Report Type: Spontaneous
  Country: US (occurrence: US)
  Receive Date: 20240226
  Receipt Date: 20240226
  Transmission Date: 20240410
  Serious: No
  Sender: FDA-Public Use
  Company Number: US-AMNEAL PHARMACEUTICALS-2023-AMRX-00901

PATIENT
  Sex: Male

DRUGS (5)
  1. RYTARY [Suspect]
     Active Substance: CARBIDOPA\LEVODOPA
     Indication: Parkinson^s disease
     Dosage: 3 (23.75/95 MG) CAPSULES, QID
     Route: 048
  2. RYTARY [Suspect]
     Active Substance: CARBIDOPA\LEVODOPA
     Dosage: 2 (23.75/95 MG) CAPSULES, 4 /DAY
     Route: 048
     Dates: start: 20230414
  3. RYTARY [Suspect]
     Active Substance: CARBIDOPA\LEVODOPA
     Dosage: 3 (23.75/95 MG) CAPSULES, 4 /DAY
     Route: 048
  4. RYTARY [Suspect]
     Active Substance: CARBIDOPA\LEVODOPA
     Dosage: 4 (23.75/95 MG) CAPSULES, 4 /DAY
     Route: 048
     Dates: start: 20231130
  5. RYTARY [Suspect]
     Active Substance: CARBIDOPA\LEVODOPA
     Dosage: RYTARY 48.75-195 MG (TAKE 2 CAPSULES FOUR TIMES A DAY)
     Route: 048
     Dates: start: 20240131

REACTIONS (3)
  - Dysgraphia [Unknown]
  - Constipation [Unknown]
  - Middle insomnia [Unknown]
